FAERS Safety Report 14593217 (Version 3)
Quarter: 2020Q2

REPORT INFORMATION
  Report Type: Spontaneous
  Country: US (occurrence: US)
  Receive Date: 20180302
  Receipt Date: 20200423
  Transmission Date: 20200713
  Serious: No
  Sender: FDA-Public Use
  Company Number: US-PFIZER INC-2018089453

PATIENT
  Age: 79 Year
  Sex: Female
  Weight: 49 kg

DRUGS (3)
  1. IBRANCE [Suspect]
     Active Substance: PALBOCICLIB
     Dosage: 100 MG, 1X/DAY
     Dates: start: 201802
  2. IBRANCE [Suspect]
     Active Substance: PALBOCICLIB
     Indication: BREAST CANCER STAGE IV
     Dosage: 250 MG, CYCLIC (250 MG CAPSULE ONCE A DAY, BY MOUTH, ON FOR 21 DAYS AND OFF FOR 7 DAYS)
     Route: 048
     Dates: start: 20180101
  3. TAMOXIFEN [Concomitant]
     Active Substance: TAMOXIFEN
     Indication: BREAST CANCER FEMALE
     Dosage: 20 MG, 1X/DAY
     Route: 048
     Dates: start: 2014, end: 201802

REACTIONS (6)
  - Nasal discomfort [Recovering/Resolving]
  - Fall [Unknown]
  - Lower limb fracture [Unknown]
  - Epistaxis [Recovered/Resolved]
  - Fatigue [Unknown]
  - Product use issue [Unknown]

NARRATIVE: CASE EVENT DATE: 201802
